FAERS Safety Report 8378389-0 (Version None)
Quarter: 2012Q2

REPORT INFORMATION
  Report Type: 
  Country: None (occurrence: None)
  Receive Date: 20120522
  Receipt Date: 20120125
  Transmission Date: 20120825
  Serious: No
  Sender: FDA-Public Use
  Company Number: US-ASTRAZENECA-2012SE05218

PATIENT
  Age: 71 Year
  Sex: Male

DRUGS (4)
  1. PLAVIX [Concomitant]
  2. PRILOSEC [Suspect]
     Indication: GASTROOESOPHAGEAL REFLUX DISEASE
     Route: 048
  3. ZANTAX [Concomitant]
     Indication: GASTROOESOPHAGEAL REFLUX DISEASE
     Dosage: DAILY
  4. PRILOSEC [Suspect]
     Dosage: DAILY
     Route: 048

REACTIONS (2)
  - DYSPEPSIA [None]
  - DRUG DOSE OMISSION [None]
